FAERS Safety Report 20772557 (Version 1)
Quarter: 2022Q2

REPORT INFORMATION
  Report Type: Spontaneous
  Country: US (occurrence: US)
  Receive Date: 20220502
  Receipt Date: 20220502
  Transmission Date: 20220720
  Serious: Yes (Hospitalization, Other)
  Sender: FDA-Public Use
  Company Number: US-ORG100016242-2022000640

PATIENT

DRUGS (9)
  1. EXPAREL [Suspect]
     Active Substance: BUPIVACAINE
     Indication: Postoperative analgesia
     Route: 050
  2. MARCAINE [Suspect]
     Active Substance: BUPIVACAINE HYDROCHLORIDE
     Indication: Postoperative analgesia
     Route: 050
  3. SODIUM CHLORIDE [Concomitant]
     Active Substance: SODIUM CHLORIDE
     Indication: Postoperative analgesia
     Route: 050
  4. ACETAMINOPHEN [Concomitant]
     Active Substance: ACETAMINOPHEN
     Indication: Preoperative care
     Dosage: PREOP
  5. ACETAMINOPHEN [Concomitant]
     Active Substance: ACETAMINOPHEN
     Indication: Preoperative care
     Dosage: POSTOP
  6. GABAPENTIN [Concomitant]
     Active Substance: GABAPENTIN
     Indication: Preoperative care
     Dosage: PREOP
  7. GABAPENTIN [Concomitant]
     Active Substance: GABAPENTIN
     Indication: Preoperative care
     Dosage: POSTOP
  8. METHOCARBAMOL [Concomitant]
     Active Substance: METHOCARBAMOL
     Indication: Postoperative analgesia
  9. KETOROLAC [Concomitant]
     Active Substance: KETOROLAC TROMETHAMINE
     Indication: Postoperative analgesia
     Dosage: IN PATIENTS WITH NORMAL CREATININE AND NO HISTORY OF KIDNEY DISEASE

REACTIONS (19)
  - Bronchopleural fistula [Unknown]
  - Chylothorax [Unknown]
  - Empyema [Unknown]
  - Myocardial infarction [Unknown]
  - Pleural effusion [Unknown]
  - Pneumothorax [Unknown]
  - Pulmonary embolism [Unknown]
  - Endotracheal intubation complication [Unknown]
  - Postoperative wound infection [Unknown]
  - Hospitalisation [Unknown]
  - Hospitalisation [Unknown]
  - Delirium [Unknown]
  - Pneumonia [Unknown]
  - Respiratory failure [Unknown]
  - Urinary retention [Unknown]
  - Arrhythmia supraventricular [Unknown]
  - Pulmonary air leakage [Unknown]
  - Urinary tract infection [Unknown]
  - Chest tube insertion [Unknown]
